FAERS Safety Report 7999718-3 (Version None)
Quarter: 2011Q4

REPORT INFORMATION
  Report Type: 
  Country: None (occurrence: None)
  Receive Date: 20111221
  Receipt Date: 20111216
  Transmission Date: 20120403
  Serious: Yes (Death)
  Sender: FDA-Public Use
  Company Number: US-ASTRAZENECA-2011SE76068

PATIENT
  Age: 19 Year
  Sex: Female

DRUGS (8)
  1. ATENOLOL [Suspect]
     Route: 048
  2. SALICYLATE [Suspect]
     Route: 048
  3. DIAZEPAM [Suspect]
     Route: 048
  4. DIPHENHYDRAMINE HCL [Suspect]
     Route: 048
  5. TRIAMTERENE AND HYDROCHLOROTHIAZIDE [Suspect]
     Route: 048
  6. ACETAMINOPHEN AND HYDROCODONE BITARTRATE [Suspect]
     Route: 048
  7. AMLODIPINE [Suspect]
     Route: 048
  8. HYDROXYZINE [Suspect]
     Route: 048

REACTIONS (3)
  - CARDIO-RESPIRATORY ARREST [None]
  - COMPLETED SUICIDE [None]
  - TOXICITY TO VARIOUS AGENTS [None]
